FAERS Safety Report 5587292-0 (Version None)
Quarter: 2008Q1

REPORT INFORMATION
  Report Type: 
  Country: None (occurrence: None)
  Receive Date: 20080110
  Receipt Date: 20080102
  Transmission Date: 20080703
  Serious: Yes (Disabling, Other)
  Sender: FDA-Public Use
  Company Number: CA-ASTRAZENECA-2007UW26446

PATIENT
  Age: 46 Year
  Sex: Male

DRUGS (7)
  1. SEROQUEL [Suspect]
     Indication: POST-TRAUMATIC STRESS DISORDER
     Route: 048
     Dates: start: 20060301
  2. ZOPICLONE [Concomitant]
     Route: 048
  3. TOPIRAMATE [Concomitant]
     Route: 048
  4. VENLAFAXINE HCL EXTENDED-RELEASE [Concomitant]
     Route: 048
  5. PRAZOSIN HCL [Concomitant]
     Indication: POST-TRAUMATIC STRESS DISORDER
     Route: 048
  6. PRAZOSIN HCL [Concomitant]
     Indication: MAJOR DEPRESSION
     Route: 048
  7. MIRTAZAPINE [Concomitant]

REACTIONS (1)
  - CEREBROVASCULAR ACCIDENT [None]
